FAERS Safety Report 22001554 (Version 28)
Quarter: 2025Q1

REPORT INFORMATION
  Report Type: Spontaneous
  Country: AR (occurrence: AR)
  Receive Date: 20230216
  Receipt Date: 20250312
  Transmission Date: 20250408
  Serious: Yes (Other)
  Sender: MYLAN
  Company Number: AR-MYLANLABS-2022M1115008

PATIENT
  Age: 41 Year
  Sex: Male

DRUGS (1)
  1. CLOZAPINE [Suspect]
     Active Substance: CLOZAPINE
     Indication: Schizophrenia
     Dosage: 200 MILLIGRAM, QD
     Dates: start: 202202

REACTIONS (7)
  - Neutropenia [Recovered/Resolved]
  - Haemoglobin decreased [Not Recovered/Not Resolved]
  - Haematocrit decreased [Not Recovered/Not Resolved]
  - Red blood cell count decreased [Not Recovered/Not Resolved]
  - Lymphocyte count increased [Recovering/Resolving]
  - Mean cell haemoglobin decreased [Recovered/Resolved]
  - Mean cell haemoglobin concentration decreased [Recovered/Resolved]

NARRATIVE: CASE EVENT DATE: 20221013
